FAERS Safety Report 24594205 (Version 2)
Quarter: 2025Q1

REPORT INFORMATION
  Report Type: Spontaneous
  Country: GB (occurrence: GB)
  Receive Date: 20241108
  Receipt Date: 20250326
  Transmission Date: 20250408
  Serious: Yes (Disabling)
  Sender: RANBAXY
  Company Number: GB-MHRA-MED-202410271712271930-BKHZG

PATIENT
  Age: 53 Year
  Sex: Female
  Weight: 86 kg

DRUGS (3)
  1. BUPRENORPHINE [Suspect]
     Active Substance: BUPRENORPHINE
     Indication: Restless leg augmentation syndrome
     Route: 065
     Dates: start: 20241021
  2. CITALOPRAM [Concomitant]
     Active Substance: CITALOPRAM
     Indication: Mixed anxiety and depressive disorder
     Route: 065
  3. UNSPECIFIED INGREDIENT [Concomitant]
     Active Substance: UNSPECIFIED INGREDIENT
     Indication: Menopause
     Route: 065

REACTIONS (1)
  - Pain in extremity [Not Recovered/Not Resolved]

NARRATIVE: CASE EVENT DATE: 20241021
